FAERS Safety Report 22385382 (Version 3)
Quarter: 2023Q4

REPORT INFORMATION
  Report Type: Spontaneous
  Country: US (occurrence: US)
  Receive Date: 20230530
  Receipt Date: 20231101
  Transmission Date: 20240110
  Serious: No
  Sender: FDA-Public Use
  Company Number: US-PHARMAESSENTIA CORPORATION-US-2023-PEC-001078

PATIENT
  Sex: Male

DRUGS (3)
  1. BESREMI [Suspect]
     Active Substance: ROPEGINTERFERON ALFA-2B-NJFT
     Indication: Essential thrombocythaemia
     Dosage: 100 MCG, Q2W
     Route: 058
     Dates: start: 20230210
  2. BESREMI [Suspect]
     Active Substance: ROPEGINTERFERON ALFA-2B-NJFT
     Dosage: 100 MCG, Q2W
     Route: 058
     Dates: start: 20230503
  3. BESREMI [Suspect]
     Active Substance: ROPEGINTERFERON ALFA-2B-NJFT
     Dosage: 100 MCG, Q2W, INCREASE DOSE 50 MICROGRAMS EVERY 2 WEEKS AS DIRECTED OR UNTIL MAX 500 MICROGRAMS
     Route: 065

REACTIONS (7)
  - Glycosylated haemoglobin increased [Unknown]
  - Off label use [Unknown]
  - Illness [Recovered/Resolved]
  - Arthritis [Unknown]
  - Bone pain [Unknown]
  - Arthralgia [Unknown]
  - Dizziness [Recovered/Resolved]

NARRATIVE: CASE EVENT DATE: 20230201
